FAERS Safety Report 24642605 (Version 4)
Quarter: 2024Q4

REPORT INFORMATION
  Report Type: Spontaneous
  Country: PT (occurrence: PT)
  Receive Date: 20241120
  Receipt Date: 20241219
  Transmission Date: 20250115
  Serious: Yes (Other)
  Sender: PIERRE FABRE MEDICAMENT
  Company Number: PT-PFM-2024-06030

PATIENT
  Age: 7 Month
  Sex: Male

DRUGS (3)
  1. PROPRANOLOL [Suspect]
     Active Substance: PROPRANOLOL HYDROCHLORIDE
     Indication: Infantile haemangioma
     Dosage: 1 MG/KG, DAILY, INITIATED AT LOW DOSES
  2. PROPRANOLOL [Suspect]
     Active Substance: PROPRANOLOL HYDROCHLORIDE
     Indication: Ulcerated haemangioma
     Dosage: 2 MG/KG, DAILY
  3. TIMOLOL [Concomitant]
     Active Substance: TIMOLOL\TIMOLOL MALEATE
     Indication: Infantile haemangioma
     Dosage: UNK

REACTIONS (4)
  - Ulcerated haemangioma [Recovered/Resolved]
  - Condition aggravated [Recovered/Resolved]
  - Product administered to patient of inappropriate age [Unknown]
  - Off label use [Unknown]
